FAERS Safety Report 21004568 (Version 2)
Quarter: 2022Q2

REPORT INFORMATION
  Report Type: Spontaneous
  Country: US (occurrence: US)
  Receive Date: 20220624
  Receipt Date: 20220628
  Transmission Date: 20220721
  Serious: No
  Sender: FDA-Public Use
  Company Number: US-PFIZER INC-202200887726

PATIENT
  Age: 70 Year
  Sex: Female
  Weight: 70.31 kg

DRUGS (2)
  1. IBRANCE [Suspect]
     Active Substance: PALBOCICLIB
     Indication: Breast cancer metastatic
     Dosage: 125 MG, CYCLIC (1X/DAY; 21 DAY CYCLE WITH SEVEN DAYS OFF)
     Route: 048
     Dates: start: 20220419
  2. LETROZOLE [Concomitant]
     Active Substance: LETROZOLE
     Indication: Antioestrogen therapy
     Dosage: UNK, 1X/DAY (2.5)
     Route: 048
     Dates: start: 2021

REACTIONS (2)
  - Off label use [Unknown]
  - White blood cell count decreased [Unknown]

NARRATIVE: CASE EVENT DATE: 20220401
